FAERS Safety Report 9438036 (Version 1)
Quarter: 2013Q3

REPORT INFORMATION
  Report Type: Spontaneous
  Country: US (occurrence: US)
  Receive Date: 20130802
  Receipt Date: 20130802
  Transmission Date: 20140515
  Serious: No
  Sender: FDA-Public Use
  Company Number: US-BRISTOL-MYERS SQUIBB COMPANY-16726028

PATIENT
  Age: 34 Year
  Sex: Female

DRUGS (1)
  1. COUMADIN [Suspect]
     Indication: COAGULATION FACTOR V LEVEL ABNORMAL
     Dates: start: 201112, end: 201205

REACTIONS (1)
  - Alopecia [Unknown]
